FAERS Safety Report 10238029 (Version 1)
Quarter: 2014Q2

REPORT INFORMATION
  Report Type: Spontaneous
  Country: US (occurrence: None)
  Receive Date: 20140613
  Receipt Date: 20140613
  Transmission Date: 20141212
  Serious: No
  Sender: FDA-Public Use
  Company Number: None

PATIENT
  Age: 12 Year
  Sex: Female
  Weight: 47.63 kg

DRUGS (4)
  1. BIVIGAM 10GM BIOTEST [Suspect]
     Indication: IMMUNODEFICIENCY COMMON VARIABLE
     Dosage: 25GM, IV DAILY X4 DAYS, Q 4 WEEKS, IV
     Route: 042
     Dates: start: 20140611
  2. BIVIGAM 5GM BIOTEST [Concomitant]
  3. BENADRYL [Concomitant]
  4. SOLU CORTEF [Concomitant]

REACTIONS (1)
  - Visual impairment [None]
